FAERS Safety Report 4824250-5 (Version None)
Quarter: 2005Q4

REPORT INFORMATION
  Report Type: 
  Country: None (occurrence: None)
  Receive Date: 20051108
  Receipt Date: 20051024
  Transmission Date: 20060501
  Serious: Yes (Hospitalization)
  Sender: FDA-Public Use
  Company Number: USA0510111596

PATIENT
  Age: 73 Year
  Sex: Female

DRUGS (4)
  1. ZYPREXA [Suspect]
     Indication: BIPOLAR DISORDER
     Dosage: 20 MG/2 DAY
     Dates: start: 20041101
  2. LAMICTAL [Concomitant]
  3. ARICEPT [Concomitant]
  4. ATIVAN [Concomitant]

REACTIONS (3)
  - ABNORMAL BEHAVIOUR [None]
  - MENTAL DISORDER [None]
  - PICA [None]
